FAERS Safety Report 9696351 (Version 1)
Quarter: 2013Q4

REPORT INFORMATION
  Report Type: Spontaneous
  Country: None (occurrence: US)
  Receive Date: 20131119
  Receipt Date: 20131119
  Transmission Date: 20140711
  Serious: No
  Sender: FDA-Public Use
  Company Number: US-TEVA-391228USA

PATIENT
  Sex: 0

DRUGS (1)
  1. OXALIPLATIN [Suspect]

REACTIONS (1)
  - Infusion site extravasation [Unknown]
